FAERS Safety Report 15494427 (Version 1)
Quarter: 2018Q4

REPORT INFORMATION
  Report Type: Spontaneous
  Country: US (occurrence: US)
  Receive Date: 20181012
  Receipt Date: 20181012
  Transmission Date: 20190205
  Serious: Yes (Life-Threatening, Hospitalization)
  Sender: FDA-Public Use
  Company Number: None

PATIENT
  Age: 46 Year
  Sex: Female
  Weight: 121.95 kg

DRUGS (1)
  1. LUPRON [Suspect]
     Active Substance: LEUPROLIDE ACETATE

REACTIONS (8)
  - Visual impairment [None]
  - Dyspnoea [None]
  - Coma [None]
  - Blood glucose increased [None]
  - Seizure [None]
  - Tongue biting [None]
  - Loss of consciousness [None]
  - Multi-organ disorder [None]

NARRATIVE: CASE EVENT DATE: 20180910
